FAERS Safety Report 4868184-9 (Version None)
Quarter: 2005Q4

REPORT INFORMATION
  Report Type: 
  Country: None (occurrence: None)
  Receive Date: 20051229
  Receipt Date: 20051125
  Transmission Date: 20060501
  Serious: Yes (Hospitalization)
  Sender: FDA-Public Use
  Company Number: DE-AVENTIS-200512729DE

PATIENT
  Age: 66 Year
  Sex: Male
  Weight: 98 kg

DRUGS (2)
  1. TAXOTERE [Suspect]
     Indication: PROSTATE CANCER
     Route: 042
     Dates: start: 20050920, end: 20050920
  2. DEXAMETHASONE TAB [Suspect]
     Indication: ANTIEMETIC SUPPORTIVE CARE
     Dates: start: 20050920

REACTIONS (1)
  - LEUKOCYTOSIS [None]
